FAERS Safety Report 5364089-8 (Version None)
Quarter: 2007Q2

REPORT INFORMATION
  Report Type: 
  Country: None (occurrence: None)
  Receive Date: 20070620
  Receipt Date: 20070612
  Transmission Date: 20071010
  Serious: Yes (Other)
  Sender: FDA-Public Use
  Company Number: JP-ASTRAZENECA-2007AP03568

PATIENT
  Age: 50 Year
  Sex: Male

DRUGS (5)
  1. IRESSA [Suspect]
     Indication: LUNG NEOPLASM MALIGNANT
     Route: 048
  2. TS-1 [Concomitant]
     Indication: LUNG NEOPLASM MALIGNANT
     Route: 048
  3. TAXOL [Concomitant]
     Indication: LUNG NEOPLASM MALIGNANT
  4. CARBOPLATIN [Concomitant]
     Indication: LUNG NEOPLASM MALIGNANT
  5. GEMCITABINE HCL [Concomitant]
     Indication: LUNG NEOPLASM MALIGNANT

REACTIONS (1)
  - LEUKOENCEPHALOPATHY [None]
